FAERS Safety Report 26051551 (Version 2)
Quarter: 2025Q4

REPORT INFORMATION
  Report Type: Report from Study
  Country: JP (occurrence: JP)
  Receive Date: 20251117
  Receipt Date: 20251229
  Transmission Date: 20260118
  Serious: Yes (Death, Life-Threatening, Other)
  Sender: GENMAB
  Company Number: JP-GENMAB-2025-03661

PATIENT
  Age: 71 Year
  Sex: Male

DRUGS (5)
  1. EPKINLY [Suspect]
     Active Substance: EPCORITAMAB-BYSP
     Indication: Diffuse large B-cell lymphoma refractory
     Dosage: 0.16 MILLIGRAM, SINGLE
     Route: 065
     Dates: start: 20240723, end: 20240723
  2. EPKINLY [Suspect]
     Active Substance: EPCORITAMAB-BYSP
     Dosage: 0.8 MILLIGRAM, SINGLE
     Route: 065
     Dates: start: 20240730, end: 20240730
  3. DEXAMETHASONE SODIUM PHOSPHATE [Suspect]
     Active Substance: DEXAMETHASONE SODIUM PHOSPHATE
     Indication: Prophylaxis
     Dosage: 13.2 MILLIGRAM/DAY, INJECTION, AT THE FIRST ADMINISTRATION IN CYCLE 1 ON DAY 1, DAY 2, DAY 3, AND DA
     Dates: start: 20240723, end: 20240801
  4. SULFAMETHOXAZOLE\TRIMETHOPRIM [Concomitant]
     Active Substance: SULFAMETHOXAZOLE\TRIMETHOPRIM
     Indication: Prophylaxis
     Dosage: UNK
  5. ACYCLOVIR [Concomitant]
     Active Substance: ACYCLOVIR
     Indication: Antiviral prophylaxis
     Dosage: UNK

REACTIONS (17)
  - Cardiac arrest [Fatal]
  - Immune effector cell-associated neurotoxicity syndrome [Not Recovered/Not Resolved]
  - Chronic hepatic failure [Unknown]
  - Apnoea [Unknown]
  - Altered state of consciousness [Unknown]
  - Hepatic cirrhosis [Fatal]
  - Hepatic failure [Fatal]
  - Weight increased [Unknown]
  - Abdominal distension [Unknown]
  - Oedema due to hepatic disease [Unknown]
  - Blood lactate dehydrogenase increased [Unknown]
  - Weight decreased [Unknown]
  - Blood lactate dehydrogenase increased [Unknown]
  - Weight decreased [Unknown]
  - Posture abnormal [Unknown]
  - Oedema [Unknown]
  - Inappropriate schedule of product administration [Unknown]

NARRATIVE: CASE EVENT DATE: 20240724
